FAERS Safety Report 20591140 (Version 1)
Quarter: 2022Q1

REPORT INFORMATION
  Report Type: Spontaneous
  Country: FR (occurrence: FR)
  Receive Date: 20220314
  Receipt Date: 20220314
  Transmission Date: 20220423
  Serious: Yes (Life-Threatening, Other)
  Sender: FDA-Public Use
  Company Number: None

PATIENT
  Age: 66 Year
  Sex: Male

DRUGS (8)
  1. FLUINDIONE [Interacting]
     Active Substance: FLUINDIONE
     Indication: Myocardial ischaemia
     Route: 048
     Dates: end: 20210627
  2. FLUINDIONE [Interacting]
     Active Substance: FLUINDIONE
     Indication: Stent placement
  3. FLUINDIONE [Interacting]
     Active Substance: FLUINDIONE
     Indication: Peripheral arterial occlusive disease
  4. FLUINDIONE [Interacting]
     Active Substance: FLUINDIONE
     Indication: Coronary artery bypass
  5. PLAVIX [Interacting]
     Active Substance: CLOPIDOGREL BISULFATE
     Indication: Peripheral arterial occlusive disease
     Route: 048
     Dates: end: 20210627
  6. PLAVIX [Interacting]
     Active Substance: CLOPIDOGREL BISULFATE
     Indication: Stent placement
  7. PLAVIX [Interacting]
     Active Substance: CLOPIDOGREL BISULFATE
     Indication: Myocardial ischaemia
  8. PLAVIX [Interacting]
     Active Substance: CLOPIDOGREL BISULFATE
     Indication: Coronary artery bypass

REACTIONS (1)
  - Cerebral haematoma [Recovering/Resolving]

NARRATIVE: CASE EVENT DATE: 20210627
